FAERS Safety Report 4585458-X (Version None)
Quarter: 2005Q1

REPORT INFORMATION
  Report Type: 
  Country: None (occurrence: None)
  Receive Date: 20050214
  Receipt Date: 20050201
  Transmission Date: 20050727
  Serious: Yes (Death, Hospitalization)
  Sender: FDA-Public Use
  Company Number: 2004090468

PATIENT
  Age: 57 Year
  Sex: Male

DRUGS (3)
  1. DOSTINEX [Suspect]
     Indication: PITUITARY TUMOUR
     Dosage: (3.5 MG, WEEKLY), ORAL
     Route: 048
     Dates: start: 20040901, end: 20041001
  2. PREDNISONE [Concomitant]
  3. LEVOTHYROXINE SODIUM [Concomitant]

REACTIONS (2)
  - CEREBROVASCULAR ACCIDENT [None]
  - COMA [None]
